FAERS Safety Report 18299324 (Version 1)
Quarter: 2020Q3

REPORT INFORMATION
  Report Type: Spontaneous
  Country: US (occurrence: US)
  Receive Date: 20200922
  Receipt Date: 20200922
  Transmission Date: 20201103
  Serious: Yes (Other)
  Sender: FDA-Public Use
  Company Number: None

PATIENT
  Age: 56 Year
  Sex: Female
  Weight: 73 kg

DRUGS (12)
  1. PANTOPRAZOLE [Concomitant]
     Active Substance: PANTOPRAZOLE
     Dates: start: 20200918, end: 20200920
  2. ALBUTEROL. [Concomitant]
     Active Substance: ALBUTEROL
     Dates: start: 20200918, end: 20200920
  3. TRAMADOL. [Concomitant]
     Active Substance: TRAMADOL
     Dates: start: 20200919, end: 20200920
  4. ENOXAPARIN [Concomitant]
     Active Substance: ENOXAPARIN
     Dates: start: 20200917, end: 20200920
  5. MELOXICAM. [Concomitant]
     Active Substance: MELOXICAM
     Dates: start: 20200918, end: 20200920
  6. METHOCARBAMOL. [Concomitant]
     Active Substance: METHOCARBAMOL
     Dates: start: 20200917, end: 20200920
  7. CEFTRIAXONE. [Concomitant]
     Active Substance: CEFTRIAXONE
     Dates: start: 20200918, end: 20200920
  8. DEXAMETHASONE. [Concomitant]
     Active Substance: DEXAMETHASONE
     Dates: start: 20200918, end: 20200920
  9. LISINOPRIL. [Concomitant]
     Active Substance: LISINOPRIL
     Dates: start: 20200918, end: 20200920
  10. REMDESIVIR. [Suspect]
     Active Substance: REMDESIVIR
     Indication: COVID-19 PNEUMONIA
     Route: 041
     Dates: start: 20200919, end: 20200919
  11. AZITHROMYCIN ANHYDROUS. [Concomitant]
     Active Substance: AZITHROMYCIN ANHYDROUS
     Dates: start: 20200917, end: 20200920
  12. ZALEPLON. [Concomitant]
     Active Substance: ZALEPLON
     Dates: start: 20200917, end: 20200920

REACTIONS (1)
  - Throat tightness [None]

NARRATIVE: CASE EVENT DATE: 20200918
